FAERS Safety Report 10350898 (Version 1)
Quarter: 2014Q3

REPORT INFORMATION
  Report Type: Spontaneous
  Country: US (occurrence: US)
  Receive Date: 20140730
  Receipt Date: 20140730
  Transmission Date: 20150326
  Serious: No
  Sender: FDA-Public Use
  Company Number: US-PFIZER INC-2014209718

PATIENT
  Age: 57 Year
  Sex: Female
  Weight: 52.15 kg

DRUGS (2)
  1. PHENYTOIN. [Suspect]
     Active Substance: PHENYTOIN
     Indication: CONVULSION
     Dosage: UNK
     Route: 048
  2. LAMOTRIGINE. [Concomitant]
     Active Substance: LAMOTRIGINE
     Dosage: 100 MG,ONE HALF IN THE MORNING AND ONE AT NIGHT
     Route: 048

REACTIONS (1)
  - Drug ineffective [Unknown]
